FAERS Safety Report 11574351 (Version 1)
Quarter: 2015Q3

REPORT INFORMATION
  Report Type: Spontaneous
  Country: US (occurrence: None)
  Receive Date: 20150928
  Receipt Date: 20150928
  Transmission Date: 20151125
  Serious: Yes (Other)
  Sender: FDA-Public Use
  Company Number: None

PATIENT
  Age: 77 Year
  Sex: Male

DRUGS (7)
  1. REVLIMID [Suspect]
     Active Substance: LENALIDOMIDE
     Indication: PLASMA CELL MYELOMA
     Route: 048
     Dates: start: 20150312, end: 20150915
  2. ASA [Concomitant]
     Active Substance: ASPIRIN
  3. METFORMIN [Concomitant]
     Active Substance: METFORMIN HYDROCHLORIDE
  4. DECADRON [Concomitant]
     Active Substance: DEXAMETHASONE
  5. GLIPIZIDE. [Concomitant]
     Active Substance: GLIPIZIDE
  6. VITAMIN D3 [Concomitant]
     Active Substance: CHOLECALCIFEROL
  7. METOPROLOL [Concomitant]
     Active Substance: METOPROLOL

REACTIONS (3)
  - Pain [None]
  - Rash [None]
  - Swelling [None]

NARRATIVE: CASE EVENT DATE: 20150816
